FAERS Safety Report 22083286 (Version 1)
Quarter: 2023Q1

REPORT INFORMATION
  Report Type: Spontaneous
  Country: PL (occurrence: PL)
  Receive Date: 20230310
  Receipt Date: 20230310
  Transmission Date: 20230418
  Serious: No
  Sender: FDA-Public Use
  Company Number: PL-PADAGIS-2023PAD00209

PATIENT

DRUGS (1)
  1. IBUPROFEN [Suspect]
     Active Substance: IBUPROFEN
     Indication: Ear pain
     Dosage: UNK, TID (3 TIMES A DAY FOR 2 DAYS)
     Route: 065

REACTIONS (1)
  - Drug ineffective for unapproved indication [Unknown]
